FAERS Safety Report 7255833-3 (Version None)
Quarter: 2011Q1

REPORT INFORMATION
  Report Type: 
  Country: None (occurrence: None)
  Receive Date: 20110129
  Receipt Date: 20100520
  Transmission Date: 20110831
  Serious: No
  Sender: FDA-Public Use
  Company Number: US-ABBOTT-10P-163-0646049-00

PATIENT
  Age: 41 Year
  Sex: Female

DRUGS (7)
  1. ZYRTEC [Concomitant]
     Indication: HYPERSENSITIVITY
  2. HUMIRA [Suspect]
     Indication: PSORIASIS
     Dates: start: 20100401
  3. OMEPRAZOLE [Concomitant]
     Indication: GASTROOESOPHAGEAL REFLUX DISEASE
     Route: 048
  4. ALBUTEROL [Concomitant]
     Indication: ASTHMA
  5. CITALOPRAM [Concomitant]
     Indication: DEPRESSION
     Route: 048
  6. ALBUTEROL RESPIRATORY TREATMENT [Concomitant]
     Indication: ASTHMA
  7. METFORMIN [Concomitant]
     Indication: GLUCOSE TOLERANCE IMPAIRED
     Route: 048

REACTIONS (2)
  - INJECTION SITE HAEMATOMA [None]
  - INJECTION SITE PAIN [None]
